FAERS Safety Report 7525957-1 (Version None)
Quarter: 2011Q2

REPORT INFORMATION
  Report Type: 
  Country: None (occurrence: None)
  Receive Date: 20110606
  Receipt Date: 20110527
  Transmission Date: 20111010
  Serious: Yes (Hospitalization)
  Sender: FDA-Public Use
  Company Number: JP-ASTRAZENECA-2011SE33825

PATIENT
  Age: 74 Year
  Sex: Female

DRUGS (1)
  1. ECARD HD [Suspect]
     Indication: HYPERTENSION
     Route: 048

REACTIONS (1)
  - GASTRIC CANCER [None]
